FAERS Safety Report 24864256 (Version 1)
Quarter: 2025Q1

REPORT INFORMATION
  Report Type: Spontaneous
  Country: US (occurrence: US)
  Receive Date: 20250120
  Receipt Date: 20250120
  Transmission Date: 20250409
  Serious: No
  Sender: OCULAR
  Company Number: US-OCULAR THERAPEUTIX-2023OCX00051

PATIENT
  Sex: Female
  Weight: 47.619 kg

DRUGS (5)
  1. DEXTENZA [Suspect]
     Active Substance: DEXAMETHASONE
     Indication: Cataract operation
     Route: 047
     Dates: start: 20231019, end: 20231127
  2. DEXTENZA [Suspect]
     Active Substance: DEXAMETHASONE
     Dates: start: 20231102, end: 20231214
  3. LISINOPRIL [Concomitant]
     Active Substance: LISINOPRIL
     Dosage: 20 MG, 1X/DAY
  4. ATORVASTATIN [Concomitant]
     Active Substance: ATORVASTATIN
     Dosage: 10 MG, 1X/DAY
  5. CALTRATE [Concomitant]
     Active Substance: CALCIUM CARBONATE

REACTIONS (5)
  - Dacryostenosis acquired [Recovered/Resolved]
  - Lacrimation increased [Recovered/Resolved]
  - Visual impairment [Recovered/Resolved]
  - Fall [Recovered/Resolved]
  - Skin abrasion [Unknown]

NARRATIVE: CASE EVENT DATE: 20230101
